FAERS Safety Report 20823104 (Version 1)
Quarter: 2022Q2

REPORT INFORMATION
  Report Type: Spontaneous
  Country: FR (occurrence: FR)
  Receive Date: 20220512
  Receipt Date: 20220512
  Transmission Date: 20220721
  Serious: Yes (Death, Hospitalization)
  Sender: FDA-Public Use
  Company Number: FR-STRIDES ARCOLAB LIMITED-2022SP005407

PATIENT

DRUGS (5)
  1. METHOTREXATE [Suspect]
     Active Substance: METHOTREXATE
     Indication: Acute lymphocytic leukaemia
     Dosage: UNK, (TRIPLE INTRATHECAL THERAPY)
     Route: 037
  2. METHOTREXATE [Suspect]
     Active Substance: METHOTREXATE
     Dosage: 1 GRAM PER SQUARE METRE (HIGH DOSE) (INDUCTION THERAPY)
     Route: 065
  3. DEXAMETHASONE [Suspect]
     Active Substance: DEXAMETHASONE
     Indication: Acute lymphocytic leukaemia
     Dosage: UNK (INDUCTION THERAPY)
     Route: 065
  4. HYDROCORTISONE [Suspect]
     Active Substance: HYDROCORTISONE
     Indication: Acute lymphocytic leukaemia
     Dosage: UNK (TRIPLE INTRATHECAL THERAPY)
     Route: 037
  5. CYTARABINE [Suspect]
     Active Substance: CYTARABINE
     Indication: Acute lymphocytic leukaemia
     Dosage: UNK (TRIPLE INTRATHECAL THERAPY)
     Route: 037

REACTIONS (1)
  - Drug ineffective [Fatal]
